FAERS Safety Report 9156070 (Version 6)
Quarter: 2014Q1

REPORT INFORMATION
  Report Type: Report from Study
  Country: US (occurrence: US)
  Receive Date: 20130311
  Receipt Date: 20140207
  Transmission Date: 20141002
  Serious: Yes (Hospitalization, Other)
  Sender: FDA-Public Use
  Company Number: US-ALEXION PHARMACEUTICALS INC.-A201300391

PATIENT
  Age: 66 Year
  Sex: Male

DRUGS (1)
  1. SOLIRIS [Suspect]
     Indication: HAEMOLYTIC URAEMIC SYNDROME
     Dosage: UNK, QW
     Route: 042

REACTIONS (14)
  - Escherichia urinary tract infection [Recovering/Resolving]
  - Haematuria [Unknown]
  - Dysuria [Unknown]
  - Escherichia sepsis [Recovering/Resolving]
  - Phlebitis [Recovering/Resolving]
  - Condition aggravated [Unknown]
  - Thrombosis [Recovering/Resolving]
  - Pain of skin [Unknown]
  - Discomfort [Recovering/Resolving]
  - Abdominal symptom [Not Recovered/Not Resolved]
  - Pain [Not Recovered/Not Resolved]
  - Haemorrhoids [Not Recovered/Not Resolved]
  - Chills [Unknown]
  - Back pain [Unknown]
